FAERS Safety Report 22735115 (Version 5)
Quarter: 2024Q1

REPORT INFORMATION
  Report Type: Spontaneous
  Country: CA (occurrence: CA)
  Receive Date: 20230721
  Receipt Date: 20240217
  Transmission Date: 20240410
  Serious: Yes (Other)
  Sender: FDA-Public Use
  Company Number: CA-CELLTRION INC.-2022CA022093

PATIENT

DRUGS (9)
  1. INFLECTRA [Suspect]
     Active Substance: INFLIXIMAB-DYYB
     Indication: Crohn^s disease
     Dosage: 5 MG/KG, INDUCTION DOSES AT WEEK 0, 2 AND 6, THEN EVERY 8 WEEKS
     Route: 042
     Dates: start: 20221212
  2. INFLECTRA [Suspect]
     Active Substance: INFLIXIMAB-DYYB
     Dosage: 5 MG/KG, INDUCTION DOSES AT WEEK 0, 2 AND 6, THEN EVERY 8 WEEKS
     Route: 042
     Dates: start: 20221228
  3. INFLECTRA [Suspect]
     Active Substance: INFLIXIMAB-DYYB
     Dosage: 5 MG/KG, (460MG), INDUCTION WEEK 6
     Route: 042
     Dates: start: 20230125
  4. INFLECTRA [Suspect]
     Active Substance: INFLIXIMAB-DYYB
     Dosage: 5 MG/KG (465 MG), EVERY 8 WEEKS
     Route: 042
     Dates: start: 20230322
  5. INFLECTRA [Suspect]
     Active Substance: INFLIXIMAB-DYYB
     Dosage: 5 MG/KG (455 MG), EVERY 8 WEEKS
     Route: 042
     Dates: start: 20230517
  6. INFLECTRA [Suspect]
     Active Substance: INFLIXIMAB-DYYB
     Dosage: 460 MG 5MG/KG EVERY 8 WEEKS
     Route: 042
     Dates: start: 20230712
  7. INFLECTRA [Suspect]
     Active Substance: INFLIXIMAB-DYYB
     Dosage: 5 MG/KG, DOSES AT WEEK 0, 2 AND 6, THEN EVERY 8 WEEKS (465 MG 8 WEEKS)
     Route: 042
     Dates: start: 20230908
  8. INFLECTRA [Suspect]
     Active Substance: INFLIXIMAB-DYYB
     Dosage: 460MG,  (5MG/KG) AFTER 7 WEEKS AND 4 DAYS (PRESCRIBED FREQUENCY EVERY 8 WEEKS)
     Route: 042
     Dates: start: 20231031
  9. INFLECTRA [Suspect]
     Active Substance: INFLIXIMAB-DYYB
     Dosage: 5 MG/KG INDUCTION DOSES AT WEEK 0, 2 AND 6, THEN EVERY 8 WEEKS,  (465MG EVERY 8 WEEKS)
     Route: 042
     Dates: start: 20231228

REACTIONS (7)
  - Condition aggravated [Not Recovered/Not Resolved]
  - Therapeutic response shortened [Unknown]
  - Drug ineffective [Not Recovered/Not Resolved]
  - Insomnia [Recovering/Resolving]
  - Stress [Recovering/Resolving]
  - Migraine [Recovering/Resolving]
  - Disease recurrence [Recovering/Resolving]

NARRATIVE: CASE EVENT DATE: 20230101
